FAERS Safety Report 10098023 (Version 2)
Quarter: 2014Q2

REPORT INFORMATION
  Report Type: Report from Study
  Country: ES (occurrence: ES)
  Receive Date: 20140423
  Receipt Date: 20140505
  Transmission Date: 20141212
  Serious: Yes (Hospitalization)
  Sender: FDA-Public Use
  Company Number: ES-AMGEN-ESPCT2014029117

PATIENT
  Age: 17 Year
  Sex: Female
  Weight: 47 kg

DRUGS (1)
  1. ETANERCEPT [Suspect]
     Indication: JUVENILE IDIOPATHIC ARTHRITIS
     Dosage: UNK UNK, QWK
     Route: 058
     Dates: start: 20100428, end: 20140415

REACTIONS (1)
  - Urinary tract infection [Recovered/Resolved]
